FAERS Safety Report 9062946 (Version 1)
Quarter: 2013Q1

REPORT INFORMATION
  Report Type: Report from Study
  Country: US (occurrence: US)
  Receive Date: 20130131
  Receipt Date: 20130131
  Transmission Date: 20140127
  Serious: No
  Sender: FDA-Public Use
  Company Number: US-ABBOTT-12P-163-1001700-00

PATIENT
  Age: 17 Year
  Sex: Female

DRUGS (7)
  1. HUMIRA [Suspect]
     Indication: JUVENILE IDIOPATHIC ARTHRITIS
     Dates: start: 20110718
  2. SULFASALAZINE [Concomitant]
     Indication: ILL-DEFINED DISORDER
  3. ETODOLAC [Concomitant]
     Indication: ILL-DEFINED DISORDER
  4. SPIRONOLACTONE [Concomitant]
     Indication: POLYCYSTIC OVARIES
  5. METFORMIN [Concomitant]
     Indication: POLYCYSTIC OVARIES
  6. LO LOESTRIN FE [Concomitant]
     Indication: POLYCYSTIC OVARIES
  7. NAPROXEN [Concomitant]
     Indication: ILL-DEFINED DISORDER

REACTIONS (1)
  - Urinary tract infection [Not Recovered/Not Resolved]
